FAERS Safety Report 6420335-0 (Version None)
Quarter: 2009Q4

REPORT INFORMATION
  Report Type: 
  Country: None (occurrence: None)
  Receive Date: 20091029
  Receipt Date: 20091015
  Transmission Date: 20100525
  Serious: Yes (Other)
  Sender: FDA-Public Use
  Company Number: DE-MYLANLABS-2009S1018154

PATIENT
  Sex: Male

DRUGS (1)
  1. CITALOPRAM [Suspect]
     Indication: DRUG USE FOR UNKNOWN INDICATION

REACTIONS (4)
  - DYSAESTHESIA [None]
  - HEADACHE [None]
  - SACCADIC EYE MOVEMENT [None]
  - WITHDRAWAL SYNDROME [None]
